FAERS Safety Report 8854155 (Version 1)
Quarter: 2012Q4

REPORT INFORMATION
  Report Type: Spontaneous
  Country: US (occurrence: None)
  Receive Date: 20121018
  Receipt Date: 20121018
  Transmission Date: 20130627
  Serious: Yes (Other)
  Sender: FDA-Public Use
  Company Number: 2012SA073427

PATIENT
  Age: 37 Year
  Sex: Male

DRUGS (1)
  1. ICY HOT [Suspect]
     Dates: start: 20121002, end: 20121004

REACTIONS (2)
  - Chemical injury [None]
  - Hypoaesthesia [None]
